FAERS Safety Report 5122996-5 (Version None)
Quarter: 2006Q4

REPORT INFORMATION
  Report Type: 
  Country: None (occurrence: None)
  Receive Date: 20061005
  Receipt Date: 20060919
  Transmission Date: 20070319
  Serious: Yes (Hospitalization, Disabling, Other)
  Sender: FDA-Public Use
  Company Number: US200607003445

PATIENT
  Age: 77 Year
  Sex: Female

DRUGS (4)
  1. FORTEO [Suspect]
     Indication: OSTEOPOROSIS
     Dates: start: 20040101, end: 20050101
  2. FORTEO [Suspect]
     Indication: OSTEOPOROSIS
     Dates: start: 20051001
  3. FORTEO PEN (FORTEO PEN) [Concomitant]
  4. PREDNISONE TAB [Concomitant]

REACTIONS (8)
  - BLINDNESS UNILATERAL [None]
  - BLOOD COUNT ABNORMAL [None]
  - BLOOD DISORDER [None]
  - GASTRIC ULCER HAEMORRHAGE [None]
  - HAEMORRHAGE [None]
  - PHARMACEUTICAL PRODUCT COMPLAINT [None]
  - RETINAL ARTERY OCCLUSION [None]
  - RETINAL VASCULAR THROMBOSIS [None]
